FAERS Safety Report 11634425 (Version 1)
Quarter: 2015Q4

REPORT INFORMATION
  Report Type: Spontaneous
  Country: US (occurrence: US)
  Receive Date: 20151015
  Receipt Date: 20151015
  Transmission Date: 20160304
  Serious: No
  Sender: FDA-Public Use
  Company Number: US-009507513-1510USA001680

PATIENT
  Age: 40 Year
  Sex: Female
  Weight: 63.49 kg

DRUGS (3)
  1. PYRIDIUM [Concomitant]
     Active Substance: PHENAZOPYRIDINE
  2. NEXPLANON [Suspect]
     Active Substance: ETONOGESTREL
     Indication: CONTRACEPTION
     Dosage: STRENGTH 68 MG, EVERY 3 YEARS, IMPLANTED INTO THE ARM
     Route: 059
     Dates: start: 20150825
  3. FLUCONAZOLE. [Concomitant]
     Active Substance: FLUCONAZOLE

REACTIONS (4)
  - Device dislocation [Not Recovered/Not Resolved]
  - Implant site irritation [Not Recovered/Not Resolved]
  - Seroma [Unknown]
  - Implant site swelling [Not Recovered/Not Resolved]

NARRATIVE: CASE EVENT DATE: 2015
